FAERS Safety Report 11659929 (Version 1)
Quarter: 2015Q4

REPORT INFORMATION
  Report Type: Report from Study
  Country: US (occurrence: US)
  Receive Date: 20151026
  Receipt Date: 20151026
  Transmission Date: 20160304
  Serious: Yes (Hospitalization, Other)
  Sender: FDA-Public Use
  Company Number: US-JNJFOC-20151012496

PATIENT
  Age: 53 Year
  Sex: Male

DRUGS (1)
  1. STELARA [Suspect]
     Active Substance: USTEKINUMAB
     Indication: PRODUCT USED FOR UNKNOWN INDICATION
     Route: 058

REACTIONS (6)
  - Palpitations [Unknown]
  - Acute kidney injury [Unknown]
  - Dehydration [Unknown]
  - Left ventricular hypertrophy [Unknown]
  - Pneumonia [Recovered/Resolved]
  - Dilatation ventricular [Unknown]

NARRATIVE: CASE EVENT DATE: 20120904
